FAERS Safety Report 10238370 (Version 1)
Quarter: 2014Q2

REPORT INFORMATION
  Report Type: Spontaneous
  Country: US (occurrence: US)
  Receive Date: 20140616
  Receipt Date: 20140616
  Transmission Date: 20141212
  Serious: Yes (Other)
  Sender: FDA-Public Use
  Company Number: US-JNJFOC-20140602360

PATIENT
  Age: 63 Year
  Sex: Male
  Weight: 48.99 kg

DRUGS (2)
  1. STELARA [Suspect]
     Indication: CROHN^S DISEASE
     Route: 058
     Dates: start: 2014
  2. STELARA [Suspect]
     Indication: CROHN^S DISEASE
     Route: 058
     Dates: start: 20140602

REACTIONS (4)
  - Colectomy [Unknown]
  - Underdose [Not Recovered/Not Resolved]
  - Syringe issue [Unknown]
  - Off label use [Not Recovered/Not Resolved]
